FAERS Safety Report 13515427 (Version 2)
Quarter: 2017Q2

REPORT INFORMATION
  Report Type: Spontaneous
  Country: RO (occurrence: RO)
  Receive Date: 20170504
  Receipt Date: 20170530
  Transmission Date: 20170830
  Serious: Yes (Other)
  Sender: FDA-Public Use
  Company Number: RO-PFIZER INC-2017191750

PATIENT
  Age: 54 Year
  Sex: Male

DRUGS (1)
  1. SUTENT [Suspect]
     Active Substance: SUNITINIB MALATE
     Indication: CLEAR CELL RENAL CELL CARCINOMA
     Dosage: 50 MG/DAY, 4 WEEKS ON WITH 2 WEEKS OFF
     Dates: start: 20160803

REACTIONS (4)
  - Iron deficiency anaemia [Recovered/Resolved]
  - Mitral valve incompetence [Recovered/Resolved]
  - Left atrial dilatation [Recovered/Resolved]
  - Left ventricular dilatation [Recovered/Resolved]

NARRATIVE: CASE EVENT DATE: 201703
